FAERS Safety Report 22589554 (Version 1)
Quarter: 2023Q2

REPORT INFORMATION
  Report Type: Spontaneous
  Country: US (occurrence: US)
  Receive Date: 20230612
  Receipt Date: 20230612
  Transmission Date: 20230722
  Serious: Yes (Other)
  Sender: FDA-Public Use
  Company Number: US-PFIZER INC-PV202300102115

PATIENT
  Sex: Female

DRUGS (3)
  1. CARBOPLATIN [Suspect]
     Active Substance: CARBOPLATIN
     Indication: Endometrial adenocarcinoma
     Dosage: UNK, EVERY 3 WEEKS
     Dates: start: 20230126
  2. CARBOPLATIN [Suspect]
     Active Substance: CARBOPLATIN
     Indication: Signet-ring cell carcinoma
  3. TAXOL [Suspect]
     Active Substance: PACLITAXEL
     Dosage: UNK, EVERY 3 WEEKS
     Dates: start: 20230126

REACTIONS (1)
  - Ascites [Unknown]

NARRATIVE: CASE EVENT DATE: 20230101
